FAERS Safety Report 21919774 (Version 1)
Quarter: 2023Q1

REPORT INFORMATION
  Report Type: Report from Study
  Country: DE (occurrence: DE)
  Receive Date: 20230127
  Receipt Date: 20230127
  Transmission Date: 20230417
  Serious: Yes (Life-Threatening)
  Sender: FDA-Public Use
  Company Number: DE-MYLANLABS-2023M1008381

PATIENT
  Age: 11 Year

DRUGS (4)
  1. ARIPIPRAZOLE [Suspect]
     Active Substance: ARIPIPRAZOLE
     Indication: Autism spectrum disorder
     Dosage: UNK
     Route: 065
  2. ARIPIPRAZOLE [Suspect]
     Active Substance: ARIPIPRAZOLE
     Indication: Intellectual disability
  3. OXCARBAZEPINE [Suspect]
     Active Substance: OXCARBAZEPINE
     Indication: Autism spectrum disorder
     Dosage: UNK
     Route: 065
  4. OXCARBAZEPINE [Suspect]
     Active Substance: OXCARBAZEPINE
     Indication: Intellectual disability

REACTIONS (2)
  - Aggression [Unknown]
  - Off label use [Unknown]
